FAERS Safety Report 15945649 (Version 1)
Quarter: 2019Q1

REPORT INFORMATION
  Report Type: Spontaneous
  Country: GB (occurrence: GB)
  Receive Date: 20190211
  Receipt Date: 20190211
  Transmission Date: 20190417
  Serious: Yes (Other)
  Sender: FDA-Public Use
  Company Number: GB-ACCORD-105665

PATIENT
  Age: 5 Year
  Sex: Male

DRUGS (7)
  1. AMOXICILLIN SODIUM/CLAVULANATE POTASSIUM [Concomitant]
  2. CETIRIZINE/CETIRIZINE HYDROCHLORIDE [Concomitant]
  3. MONTELUKAST [Suspect]
     Active Substance: MONTELUKAST SODIUM
     Indication: WHEEZING
     Route: 048
     Dates: start: 20180520, end: 20180521
  4. PREDNISOLONE. [Concomitant]
     Active Substance: PREDNISOLONE
  5. SALBUTAMOL [Concomitant]
     Active Substance: ALBUTEROL
  6. IBUPROFEN. [Concomitant]
     Active Substance: IBUPROFEN
  7. CALPOL [Concomitant]
     Active Substance: ACETAMINOPHEN

REACTIONS (2)
  - Sleep terror [Recovered/Resolved]
  - Off label use [Unknown]

NARRATIVE: CASE EVENT DATE: 20180521
